FAERS Safety Report 6676995-2 (Version None)
Quarter: 2010Q2

REPORT INFORMATION
  Report Type: 
  Country: None (occurrence: None)
  Receive Date: 20100412
  Receipt Date: 20100329
  Transmission Date: 20101027
  Serious: Yes (Other)
  Sender: FDA-Public Use
  Company Number: US-ELI_LILLY_AND_COMPANY-US201004001071

PATIENT
  Sex: Male
  Weight: 122.45 kg

DRUGS (6)
  1. FORTEO [Suspect]
     Indication: OSTEOPOROSIS
     Dosage: 20 UG, DAILY (1/D)
     Dates: start: 20100309
  2. PHENOBARBITAL TAB [Concomitant]
  3. DILANTIN [Concomitant]
  4. CARBAMAZEPINE [Concomitant]
  5. VITAMIN D [Concomitant]
     Dosage: UNK, DAILY (1/D)
  6. MULTI-VITAMIN [Concomitant]

REACTIONS (9)
  - COLD SWEAT [None]
  - CONVULSION [None]
  - DIARRHOEA [None]
  - DYSKINESIA [None]
  - EYE ROLLING [None]
  - FACIAL SPASM [None]
  - FEELING COLD [None]
  - HYPERHIDROSIS [None]
  - STRESS [None]
